FAERS Safety Report 6497689-2 (Version None)
Quarter: 2009Q4

REPORT INFORMATION
  Report Type: 
  Country: None (occurrence: None)
  Receive Date: 20091125
  Receipt Date: 20091015
  Transmission Date: 20100525
  Serious: No
  Sender: FDA-Public Use
  Company Number: MC200900386

PATIENT

DRUGS (1)
  1. CLEVIPREX [Suspect]
     Dosage: INTRAVENOUS
     Route: 042
     Dates: start: 20091001

REACTIONS (1)
  - INFUSION SITE EXTRAVASATION [None]
